FAERS Safety Report 4751755-8 (Version None)
Quarter: 2005Q3

REPORT INFORMATION
  Report Type: 
  Country: None (occurrence: None)
  Receive Date: 20050824
  Receipt Date: 20050811
  Transmission Date: 20060218
  Serious: Yes (Hospitalization)
  Sender: FDA-Public Use
  Company Number: 2005AP04412

PATIENT
  Age: 23514 Day
  Sex: Female
  Weight: 78.3 kg

DRUGS (3)
  1. IRESSA [Suspect]
     Indication: LUNG ADENOCARCINOMA
     Route: 048
     Dates: start: 20050609, end: 20050811
  2. RINDERON-VG [Concomitant]
     Indication: SKIN DISORDER
     Dates: start: 20050721
  3. CALSLOT [Concomitant]
     Indication: HYPERTENSION
     Route: 048

REACTIONS (6)
  - C-REACTIVE PROTEIN INCREASED [None]
  - CHILLS [None]
  - DISEASE PROGRESSION [None]
  - NAUSEA [None]
  - PYREXIA [None]
  - WHITE BLOOD CELL COUNT INCREASED [None]
